FAERS Safety Report 7788386-1 (Version None)
Quarter: 2011Q3

REPORT INFORMATION
  Report Type: 
  Country: None (occurrence: None)
  Receive Date: 20110928
  Receipt Date: 20110923
  Transmission Date: 20111222
  Serious: Yes (Hospitalization)
  Sender: FDA-Public Use
  Company Number: 2011AP001536

PATIENT
  Age: 78 Year
  Sex: Male

DRUGS (10)
  1. CLARITHROMYCIN [Suspect]
     Indication: ISCHAEMIC ULCER
     Dosage: 500 MG, PO, BID, PO
     Route: 048
     Dates: start: 20090801, end: 20110606
  2. CLARITHROMYCIN [Suspect]
     Indication: OSTEOMYELITIS
     Dosage: 500 MG, PO, BID, PO
     Route: 048
     Dates: start: 20090801, end: 20110606
  3. FUSIDIC ACID [Suspect]
     Indication: OSTEOMYELITIS
     Dosage: 500 MG, PO, TID, PO
     Route: 048
     Dates: start: 20090901, end: 20110605
  4. FUSIDIC ACID [Suspect]
     Indication: ISCHAEMIC ULCER
     Dosage: 500 MG, PO, TID, PO
     Route: 048
     Dates: start: 20090901, end: 20110605
  5. FUROSMIDE (FUROSEMIDE) [Concomitant]
  6. INSULIN ASPART (INSULIN ASPART) [Concomitant]
  7. BISOPROLOL FUMARATE [Concomitant]
  8. LACTULOSE [Concomitant]
  9. WARFARIN SODIUM [Concomitant]
  10. ATORVASTATIN [Suspect]
     Indication: MYOCARDIAL ISCHAEMIA
     Dosage: 10 MG, QD, PO
     Route: 048
     Dates: start: 20090101, end: 20110606

REACTIONS (5)
  - MUSCULAR WEAKNESS [None]
  - URINARY RETENTION [None]
  - HAEMODIALYSIS [None]
  - RHABDOMYOLYSIS [None]
  - RENAL FAILURE ACUTE [None]
